FAERS Safety Report 20199902 (Version 6)
Quarter: 2022Q1

REPORT INFORMATION
  Report Type: Report from Study
  Country: ES (occurrence: None)
  Receive Date: 20211217
  Receipt Date: 20220329
  Transmission Date: 20220423
  Serious: Yes (Hospitalization)
  Sender: FDA-Public Use
  Company Number: ES-Eisai Medical Research-EC-2021-105036

PATIENT
  Age: 76 Year
  Sex: Female
  Weight: 71.2 kg

DRUGS (3)
  1. LENVATINIB [Suspect]
     Active Substance: LENVATINIB
     Indication: Colorectal cancer metastatic
     Dosage: UNTIL DISCONTINUATION OR PROGRESIVE DISEASE
     Route: 048
     Dates: start: 20211202, end: 20211209
  2. LENVATINIB [Suspect]
     Active Substance: LENVATINIB
     Dosage: UNTIL DISCONTINUATION OR PROGRESIVE DISEASE
     Route: 048
     Dates: start: 20211215, end: 20211227
  3. PEMBROLIZUMAB [Suspect]
     Active Substance: PEMBROLIZUMAB
     Indication: Colorectal cancer metastatic
     Dosage: UP TO 18 CYCLES
     Route: 041
     Dates: start: 20211202, end: 20211202

REACTIONS (1)
  - Malignant hypertension [Recovered/Resolved]

NARRATIVE: CASE EVENT DATE: 20211209
